FAERS Safety Report 9114289 (Version 1)
Quarter: 2013Q1

REPORT INFORMATION
  Report Type: Spontaneous
  Country: US (occurrence: US)
  Receive Date: 20130129
  Receipt Date: 20130129
  Transmission Date: 20140127
  Serious: No
  Sender: FDA-Public Use
  Company Number: US-ABBOTT-12P-163-0937178-00

PATIENT
  Sex: Male
  Weight: 88.53 kg

DRUGS (2)
  1. HUMIRA 40 MG/ 0.8 ML PRE-FILLED SYRINGE [Suspect]
     Indication: RHEUMATOID ARTHRITIS
     Route: 058
     Dates: start: 2006, end: 2009
  2. SODIUM GOLD COMPOUND OF P-DIMETHYLAMINOP [Suspect]
     Indication: RHEUMATOID ARTHRITIS
     Dates: end: 2009

REACTIONS (4)
  - Unevaluable event [Not Recovered/Not Resolved]
  - Staphylococcal infection [Recovered/Resolved]
  - Hordeolum [Recovered/Resolved]
  - Furuncle [Recovered/Resolved]
